FAERS Safety Report 6074751-X (Version None)
Quarter: 2009Q1

REPORT INFORMATION
  Report Type: 
  Country: None (occurrence: None)
  Receive Date: 20090212
  Receipt Date: 20090210
  Transmission Date: 20090719
  Serious: Yes (Death)
  Sender: FDA-Public Use
  Company Number: GB-JNJFOC-20090202565

PATIENT

DRUGS (1)
  1. RISPERIDONE [Suspect]
     Indication: DRUG USE FOR UNKNOWN INDICATION
     Dosage: DRUG WAS INITIATED IN OR AFTER AUGUST 2002 AND STOPPED BEFORE OCTOBER 2004
     Route: 030

REACTIONS (1)
  - MYOCARDIAL INFARCTION [None]
